FAERS Safety Report 13291165 (Version 1)
Quarter: 2017Q1

REPORT INFORMATION
  Report Type: Spontaneous
  Country: US (occurrence: US)
  Receive Date: 20170302
  Receipt Date: 20170302
  Transmission Date: 20170428
  Serious: Yes (Other)
  Sender: FDA-Public Use
  Company Number: None

PATIENT
  Age: 53 Year
  Sex: Female

DRUGS (3)
  1. ROHTO COOL [Suspect]
     Active Substance: NAPHAZOLINE HYDROCHLORIDE\POLYSORBATE 80
     Indication: OCULAR HYPERAEMIA
     Dosage: ?          QUANTITY:1 BOTTLE;?
     Route: 047
     Dates: end: 20140120
  2. DEXAMETHASONE. [Concomitant]
     Active Substance: DEXAMETHASONE
  3. TOBRAMYCIN. [Concomitant]
     Active Substance: TOBRAMYCIN

REACTIONS (5)
  - Dry eye [None]
  - Eye irritation [None]
  - Ocular hyperaemia [None]
  - Product use issue [None]
  - Corneal infection [None]

NARRATIVE: CASE EVENT DATE: 20170301
